FAERS Safety Report 7241332-1 (Version None)
Quarter: 2011Q1

REPORT INFORMATION
  Report Type: 
  Country: None (occurrence: None)
  Receive Date: 20110120
  Receipt Date: 20110120
  Transmission Date: 20110831
  Serious: Yes (Other)
  Sender: FDA-Public Use
  Company Number: None

PATIENT
  Age: 86 Year
  Sex: Male
  Weight: 63.5036 kg

DRUGS (1)
  1. TOCILIZUMAB 400 MG  ROCHE [Suspect]
     Indication: RHEUMATOID ARTHRITIS
     Dosage: TOCILIZUMAB Q MONTH IV DRIP
     Route: 041
     Dates: start: 20101001, end: 20110101

REACTIONS (6)
  - ABDOMINAL DISCOMFORT [None]
  - DECREASED APPETITE [None]
  - ABDOMINAL PAIN [None]
  - APHAGIA [None]
  - ABDOMINAL DISTENSION [None]
  - MALAISE [None]
